FAERS Safety Report 9214457 (Version 1)
Quarter: 2013Q2

REPORT INFORMATION
  Report Type: Report from Study
  Country: US (occurrence: US)
  Receive Date: 20130405
  Receipt Date: 20130405
  Transmission Date: 20140414
  Serious: Yes (Hospitalization, Other)
  Sender: FDA-Public Use
  Company Number: US-ROCHE-1199032

PATIENT
  Age: 58 Year
  Sex: Male
  Weight: 60.84 kg

DRUGS (8)
  1. ERIVEDGE [Suspect]
     Indication: BASAL CELL CARCINOMA
     Route: 048
     Dates: start: 20130211
  2. KEPPRA [Concomitant]
     Indication: CONVULSION
     Route: 048
     Dates: start: 20130316
  3. DEXAMETHASONE [Concomitant]
     Indication: BRAIN OEDEMA
     Route: 048
     Dates: start: 20130316
  4. DEXAMETHASONE [Concomitant]
     Route: 048
     Dates: start: 20130114
  5. COMPAZINE [Concomitant]
     Indication: VOMITING
     Route: 048
     Dates: start: 20130305
  6. LORAZEPAM [Concomitant]
     Indication: ANXIETY
     Route: 048
     Dates: start: 20130109
  7. NORCO [Concomitant]
     Indication: PAIN
     Dosage: 1 TAB
     Route: 048
     Dates: start: 20130225
  8. TOBRAMYCIN SULFATE [Concomitant]
     Dosage: INSTILL ONE DROP
     Route: 047
     Dates: start: 20130121

REACTIONS (9)
  - Convulsion [Recovered/Resolved]
  - Headache [Recovering/Resolving]
  - Weight decreased [Recovering/Resolving]
  - Decreased appetite [Recovering/Resolving]
  - Fatigue [Recovering/Resolving]
  - Asthenia [Recovering/Resolving]
  - Abdominal pain upper [Not Recovered/Not Resolved]
  - Diarrhoea [Not Recovered/Not Resolved]
  - Nausea [Not Recovered/Not Resolved]
